FAERS Safety Report 22067940 (Version 2)
Quarter: 2023Q1

REPORT INFORMATION
  Report Type: Report from Study
  Country: US (occurrence: US)
  Receive Date: 20230307
  Receipt Date: 20230316
  Transmission Date: 20230418
  Serious: Yes (Hospitalization)
  Sender: FDA-Public Use
  Company Number: US-ABBVIE-4328990

PATIENT
  Sex: Male

DRUGS (3)
  1. RINVOQ [Suspect]
     Active Substance: UPADACITINIB
     Indication: Psoriatic arthropathy
     Route: 048
     Dates: start: 20220822
  2. MAGNESIUM [Concomitant]
     Active Substance: MAGNESIUM
     Indication: Product used for unknown indication
  3. CELEBREX [Concomitant]
     Active Substance: CELECOXIB
     Indication: Product used for unknown indication

REACTIONS (7)
  - Jaundice [Recovering/Resolving]
  - Renal impairment [Unknown]
  - Blood pressure abnormal [Unknown]
  - Dehydration [Unknown]
  - Unevaluable event [Unknown]
  - Urinary tract infection [Recovering/Resolving]
  - Sepsis [Recovering/Resolving]
